FAERS Safety Report 8552715-1 (Version None)
Quarter: 2012Q3

REPORT INFORMATION
  Report Type: 
  Country: None (occurrence: None)
  Receive Date: 20120731
  Receipt Date: 20120723
  Transmission Date: 20120928
  Serious: Yes (Life-Threatening, Other)
  Sender: FDA-Public Use
  Company Number: PHHY2010MX43844

PATIENT
  Sex: Female

DRUGS (7)
  1. MICARDIS [Concomitant]
  2. EXFORGE HCT [Concomitant]
     Indication: HYPERTENSION
     Dosage: 1 DF, ONCE/SINGLE (160/5/12.5 MG)
     Route: 048
     Dates: start: 20100101
  3. HALCION [Concomitant]
     Indication: INSOMNIA
     Dosage: 12.5 MG, UNK
  4. ZOLEDRONOC ACID [Suspect]
     Dosage: 5 MG PER YEAR
     Route: 042
     Dates: start: 20100201
  5. ZOLEDRONOC ACID [Suspect]
     Indication: OSTEOPOROSIS
     Dosage: 5 MG, PER YEAR
     Route: 042
     Dates: start: 20090215
  6. MICARDIS HCT [Concomitant]
  7. CALCIUM [Concomitant]

REACTIONS (12)
  - FEELING ABNORMAL [None]
  - GLOMERULAR FILTRATION RATE DECREASED [None]
  - PYREXIA [None]
  - DIZZINESS [None]
  - CHILLS [None]
  - OEDEMA PERIPHERAL [None]
  - VOMITING [None]
  - LETHARGY [None]
  - ARTHRALGIA [None]
  - BONE PAIN [None]
  - NAUSEA [None]
  - DEHYDRATION [None]
